FAERS Safety Report 26076389 (Version 1)
Quarter: 2025Q4

REPORT INFORMATION
  Report Type: Spontaneous
  Country: CH (occurrence: CH)
  Receive Date: 20251121
  Receipt Date: 20251121
  Transmission Date: 20260118
  Serious: Yes (Other)
  Sender: SANDOZ
  Company Number: CH-002147023-NVSC2025CH178751

PATIENT
  Sex: Female

DRUGS (1)
  1. CIPROFLOXACIN [Suspect]
     Active Substance: CIPROFLOXACIN
     Indication: Otitis externa
     Dosage: UNK
     Route: 065
     Dates: start: 202509

REACTIONS (3)
  - Ear discomfort [Unknown]
  - Deafness unilateral [Unknown]
  - Otorrhoea [Unknown]

NARRATIVE: CASE EVENT DATE: 20251101
